FAERS Safety Report 7390242-8 (Version None)
Quarter: 2011Q2

REPORT INFORMATION
  Report Type: 
  Country: None (occurrence: None)
  Receive Date: 20110401
  Receipt Date: 20110324
  Transmission Date: 20111010
  Serious: Yes (Hospitalization)
  Sender: FDA-Public Use
  Company Number: PHHO2011GB04090

PATIENT
  Sex: Female

DRUGS (10)
  1. SOLIFENACIN SUCCINATE [Concomitant]
     Indication: INCONTINENCE
  2. DOCUSATE SODIUM [Concomitant]
     Indication: CONSTIPATION
  3. PARACETAMOL [Concomitant]
     Indication: PAIN
  4. GLEEVEC [Suspect]
     Indication: CHRONIC MYELOID LEUKAEMIA
     Dosage: 400 MG, QD
     Route: 048
     Dates: start: 20100901
  5. OMEPRAZOLE [Concomitant]
  6. GLEEVEC [Suspect]
     Dosage: 100 MG, UNK
     Route: 048
  7. HALOPERIDOL [Concomitant]
     Indication: NAUSEA
  8. RANITIDINE [Concomitant]
  9. FENTANYL [Concomitant]
  10. METOCLOPRAMIDE [Concomitant]
     Indication: NAUSEA

REACTIONS (5)
  - VOMITING [None]
  - ABDOMINAL DISTENSION [None]
  - NAUSEA [None]
  - DUODENAL STENOSIS [None]
  - DECREASED APPETITE [None]
